FAERS Safety Report 5153787-7 (Version None)
Quarter: 2006Q4

REPORT INFORMATION
  Report Type: 
  Country: None (occurrence: None)
  Receive Date: 20061120
  Receipt Date: 20061107
  Transmission Date: 20070319
  Serious: Yes (Hospitalization)
  Sender: FDA-Public Use
  Company Number: PHRM2006FR02995

PATIENT
  Age: 56 Year
  Sex: Male

DRUGS (9)
  1. CORTANCYL [Concomitant]
     Route: 048
  2. OMEPRAZOLE [Concomitant]
     Route: 048
  3. HEPSERA [Suspect]
     Indication: HEPATITIS B
     Route: 048
     Dates: start: 20060929, end: 20061006
  4. HEPSERA [Suspect]
     Route: 048
     Dates: start: 20061011
  5. CLAMOXYL [Suspect]
     Indication: BURSITIS
     Route: 048
     Dates: start: 20060926, end: 20061001
  6. CARDENSIEL [Suspect]
     Route: 048
     Dates: end: 20061005
  7. CACIT D3 [Concomitant]
  8. ZEFFIX [Concomitant]
  9. TAREG [Suspect]
     Route: 048
     Dates: end: 20061005

REACTIONS (5)
  - HYPOTENSION [None]
  - PYREXIA [None]
  - RASH MORBILLIFORM [None]
  - RASH PRURITIC [None]
  - TOXIC SKIN ERUPTION [None]
